FAERS Safety Report 6767300-1 (Version None)
Quarter: 2010Q2

REPORT INFORMATION
  Report Type: 
  Country: None (occurrence: None)
  Receive Date: 20100611
  Receipt Date: 20100611
  Transmission Date: 20101027
  Serious: Yes (Other)
  Sender: FDA-Public Use
  Company Number: None

PATIENT
  Age: 40 Year
  Sex: Male
  Weight: 112.9457 kg

DRUGS (2)
  1. ROCURONIUM BROMIDE [Suspect]
     Indication: SURGERY
     Dosage: 50 MG ONCE IV
     Route: 042
     Dates: start: 20100528, end: 20100528
  2. ROCURONIUM BROMIDE [Suspect]
     Indication: UMBILICAL HERNIA REPAIR
     Dosage: 50 MG ONCE IV
     Route: 042
     Dates: start: 20100528, end: 20100528

REACTIONS (1)
  - DELAYED RECOVERY FROM ANAESTHESIA [None]
